FAERS Safety Report 15562255 (Version 1)
Quarter: 2018Q4

REPORT INFORMATION
  Report Type: Spontaneous
  Country: US (occurrence: US)
  Receive Date: 20181029
  Receipt Date: 20181029
  Transmission Date: 20190205
  Serious: Yes (Hospitalization)
  Sender: FDA-Public Use
  Company Number: None

PATIENT
  Sex: Male

DRUGS (6)
  1. ALBUTEROL. [Concomitant]
     Active Substance: ALBUTEROL
  2. ALEVE [Concomitant]
     Active Substance: NAPROXEN SODIUM
  3. NASONEX [Concomitant]
     Active Substance: MOMETASONE FUROATE
  4. DOXYCYCL [Concomitant]
  5. TOBRAMYCIN. [Suspect]
     Active Substance: TOBRAMYCIN
     Indication: BRONCHIECTASIS
     Route: 048
     Dates: start: 20160818
  6. ZYRTEC [Concomitant]
     Active Substance: CETIRIZINE HYDROCHLORIDE

REACTIONS (1)
  - Hypoxia [None]
